FAERS Safety Report 10008635 (Version 1)
Quarter: 2014Q1

REPORT INFORMATION
  Report Type: Spontaneous
  Country: US (occurrence: US)
  Receive Date: 20140312
  Receipt Date: 20140312
  Transmission Date: 20141002
  Serious: No
  Sender: FDA-Public Use
  Company Number: US-INCYTE CORPORATION-2012IN000182

PATIENT
  Age: 62 Year
  Sex: Male

DRUGS (4)
  1. JAKAFI [Suspect]
     Indication: MYELOFIBROSIS
     Dosage: 15 MG, BID
     Route: 048
     Dates: start: 20120117
  2. METHADONE [Concomitant]
     Dosage: 2.5 MG, BID
  3. ROPINIROLE [Concomitant]
     Dosage: 0.25 MG, 4-6X PER DAY
  4. TRAMADOL [Concomitant]
     Dosage: 50 MG, QID

REACTIONS (2)
  - Fatigue [Not Recovered/Not Resolved]
  - Dizziness [Not Recovered/Not Resolved]
